APPROVED DRUG PRODUCT: CANCIDAS
Active Ingredient: CASPOFUNGIN ACETATE
Strength: 70MG/VIAL
Dosage Form/Route: POWDER;INTRAVENOUS
Application: N021227 | Product #002
Applicant: MERCK AND CO INC
Approved: Jan 26, 2001 | RLD: Yes | RS: No | Type: DISCN